FAERS Safety Report 23940295 (Version 5)
Quarter: 2024Q4

REPORT INFORMATION
  Report Type: Spontaneous
  Country: CA (occurrence: CA)
  Receive Date: 20240605
  Receipt Date: 20241127
  Transmission Date: 20250115
  Serious: Yes (Other)
  Sender: CELLTRION
  Company Number: CA-PFIZER INC-202400100129

PATIENT

DRUGS (6)
  1. INFLECTRA [Suspect]
     Active Substance: INFLIXIMAB-DYYB
     Indication: Crohn^s disease
     Dosage: 385 MG, AT WEEK 0, 2, 6 THEN Q 8 WEEKS (WEEK 0 IN HOSPITAL)
     Route: 042
     Dates: start: 20240417
  2. INFLECTRA [Suspect]
     Active Substance: INFLIXIMAB-DYYB
     Dosage: 385 MG, AT WEEK 0, 2, 6 THEN Q 8 WEEKS (WEEK 2 DOSE)
     Route: 042
     Dates: start: 20240502
  3. INFLECTRA [Suspect]
     Active Substance: INFLIXIMAB-DYYB
     Dosage: 385 MG, AT WEEK 0, 2, 6 THEN Q 8 WEEKS (AFTER 3 WEEKS AND 6 DAYS)
     Route: 042
     Dates: start: 20240528
  4. INFLECTRA [Suspect]
     Active Substance: INFLIXIMAB-DYYB
     Dosage: 385 MG, 16 WEEKS (385 MG, AT WEEK 0, 2, AND 6 THEN Q 8 WEEKS)
     Route: 042
     Dates: start: 20240917
  5. INFLECTRA [Suspect]
     Active Substance: INFLIXIMAB-DYYB
     Dosage: 385 MG, AFTER 9 WEEKS (385 MG, AT WEEK 0, 2, AND 6 THEN Q 8 WEEKS)
     Route: 042
     Dates: start: 20241119
  6. PREDNISONE [Concomitant]
     Active Substance: PREDNISONE
     Dosage: 1 DF, UNKNOWN DOSE
     Route: 065
     Dates: start: 20240416

REACTIONS (7)
  - Blood pressure increased [Not Recovered/Not Resolved]
  - Localised infection [Unknown]
  - Blood pressure systolic increased [Not Recovered/Not Resolved]
  - Heart rate abnormal [Recovered/Resolved]
  - Abdominal pain [Recovered/Resolved]
  - Arthralgia [Not Recovered/Not Resolved]
  - Inappropriate schedule of product administration [Unknown]

NARRATIVE: CASE EVENT DATE: 20240101
